FAERS Safety Report 20347313 (Version 1)
Quarter: 2022Q1

REPORT INFORMATION
  Report Type: Spontaneous
  Country: US (occurrence: None)
  Receive Date: 20220118
  Receipt Date: 20220118
  Transmission Date: 20220423
  Serious: Yes (unspecified)
  Sender: FDA-Public Use
  Company Number: None

PATIENT
  Age: 81 Year
  Sex: Male
  Weight: 248 kg

DRUGS (1)
  1. SACUBITRIL\VALSARTAN [Suspect]
     Active Substance: SACUBITRIL\VALSARTAN
     Indication: Cardiac failure congestive
     Dosage: OTHER QUANTITY : 1 TAB;?FREQUENCY : TWICE A DAY;?
     Route: 048
     Dates: start: 20210820, end: 20211029

REACTIONS (1)
  - Priapism [None]

NARRATIVE: CASE EVENT DATE: 20211029
